FAERS Safety Report 10021290 (Version 2)
Quarter: 2014Q1

REPORT INFORMATION
  Report Type: Spontaneous
  Country: IT (occurrence: IT)
  Receive Date: 20140319
  Receipt Date: 20140328
  Transmission Date: 20141002
  Serious: Yes (Life-Threatening, Hospitalization)
  Sender: FDA-Public Use
  Company Number: IT-ASTRAZENECA-2014SE17405

PATIENT
  Age: 9742 Day
  Sex: Female

DRUGS (8)
  1. SEROQUEL [Suspect]
     Indication: DRUG ABUSE
     Route: 048
  2. SEROQUEL [Suspect]
     Indication: SCHIZOPHRENIA
     Route: 048
  3. SEROQUEL [Suspect]
     Indication: DRUG ABUSE
     Route: 048
     Dates: start: 20140210, end: 20140210
  4. SEROQUEL [Suspect]
     Indication: SCHIZOPHRENIA
     Route: 048
     Dates: start: 20140210, end: 20140210
  5. SEREUPIN [Suspect]
     Indication: DRUG ABUSE
     Route: 048
  6. SEREUPIN [Suspect]
     Indication: DRUG ABUSE
     Route: 048
     Dates: start: 20140210, end: 20140210
  7. LEXOTAN [Suspect]
     Indication: DRUG ABUSE
     Route: 048
  8. LEXOTAN [Suspect]
     Indication: DRUG ABUSE
     Route: 048
     Dates: start: 20140210, end: 20140210

REACTIONS (4)
  - Overdose [Unknown]
  - Drug abuse [Recovered/Resolved]
  - Suicide attempt [Unknown]
  - Sopor [Recovered/Resolved]
